FAERS Safety Report 19349827 (Version 1)
Quarter: 2021Q2

REPORT INFORMATION
  Report Type: Spontaneous
  Country: SE (occurrence: SE)
  Receive Date: 20210531
  Receipt Date: 20210531
  Transmission Date: 20210717
  Serious: Yes (Disabling)
  Sender: FDA-Public Use
  Company Number: SE-TEVA-2021-SE-1916193

PATIENT
  Sex: Female

DRUGS (1)
  1. DULOXETIN TEVA B.V. 60 MG ENTEROKAPSEL, HARD [Suspect]
     Active Substance: DULOXETINE HYDROCHLORIDE
     Dosage: 60 MILLIGRAM DAILY; 60 MG 1 CAPSULE PER DAY
     Route: 048

REACTIONS (1)
  - Emotional poverty [Not Recovered/Not Resolved]
